FAERS Safety Report 10904877 (Version 1)
Quarter: 2015Q1

REPORT INFORMATION
  Report Type: Spontaneous
  Country: US (occurrence: None)
  Receive Date: 20150304
  Receipt Date: 20150304
  Transmission Date: 20150721
  Serious: No
  Sender: FDA-Public Use
  Company Number: None

PATIENT
  Age: 34 Year
  Sex: Female
  Weight: 113.4 kg

DRUGS (23)
  1. AMBIEN CR [Concomitant]
     Active Substance: ZOLPIDEM TARTRATE
  2. ACETAMINOPHEN. [Concomitant]
     Active Substance: ACETAMINOPHEN
  3. VITAMIN E [Concomitant]
     Active Substance: .ALPHA.-TOCOPHEROL
  4. VITAMIN D [Concomitant]
     Active Substance: CHOLECALCIFEROL
  5. JOLESSA [Concomitant]
     Active Substance: ETHINYL ESTRADIOL\LEVONORGESTREL
  6. ZYRTEC [Concomitant]
     Active Substance: CETIRIZINE HYDROCHLORIDE
  7. CRANBERRY. [Concomitant]
     Active Substance: CRANBERRY
  8. BIOTIN [Concomitant]
     Active Substance: BIOTIN
  9. OMEPRAZOLE. [Concomitant]
     Active Substance: OMEPRAZOLE
  10. SUDAFED [Concomitant]
     Active Substance: PSEUDOEPHEDRINE HYDROCHLORIDE
  11. ASPIRIN. [Concomitant]
     Active Substance: ASPIRIN
  12. VITAMIN C [Concomitant]
     Active Substance: ASCORBIC ACID
  13. PROMETHAZINE [Concomitant]
     Active Substance: PROMETHAZINE\PROMETHAZINE HYDROCHLORIDE
  14. NUCYNTA [Concomitant]
     Active Substance: TAPENTADOL HYDROCHLORIDE
  15. FLAX SEED [Concomitant]
     Active Substance: FLAX SEED
  16. PRENATAL VITAMIN [Concomitant]
     Active Substance: VITAMINS
  17. BENADRYL [Concomitant]
     Active Substance: DIPHENHYDRAMINE HYDROCHLORIDE
  18. HYDROCORTISONE CREAM [Concomitant]
     Active Substance: HYDROCORTISONE
  19. SUPER B COMPLEX [Concomitant]
     Active Substance: CYANOCOBALAMIN\DEXPANTHENOL\NIACINAMIDE\PYRIDOXINE HYDROCHLORIDE\RIBOFLAVIN 5^-PHOSPHATE SODIUM\THIAMINE HYDROCHLORIDE\VITAMIN B COMPLEX
  20. CHLORAPREP [Suspect]
     Active Substance: CHLORHEXIDINE GLUCONATE\ISOPROPYL ALCOHOL
     Indication: PREOPERATIVE CARE
     Dosage: APPLIED TO A SURFACE, USUALLY THE SKIN
     Dates: start: 20150219, end: 20150219
  21. CHLORAPREP [Suspect]
     Active Substance: CHLORHEXIDINE GLUCONATE\ISOPROPYL ALCOHOL
     Indication: INFECTION PROPHYLAXIS
     Dosage: APPLIED TO A SURFACE, USUALLY THE SKIN
     Dates: start: 20150219, end: 20150219
  22. DOCUSATE [Concomitant]
     Active Substance: DOCUSATE
  23. CALCIUM/VITAMIN D [Concomitant]
     Active Substance: CALCIUM\VITAMIN D

REACTIONS (5)
  - Application site rash [None]
  - Application site erythema [None]
  - Therapeutic response decreased [None]
  - Application site pruritus [None]
  - Application site reaction [None]

NARRATIVE: CASE EVENT DATE: 20150227
